FAERS Safety Report 10277104 (Version 2)
Quarter: 2021Q4

REPORT INFORMATION
  Report Type: Spontaneous
  Country: GB (occurrence: GB)
  Receive Date: 20140703
  Receipt Date: 20211203
  Transmission Date: 20220303
  Serious: Yes (Other)
  Sender: FDA-Public Use
  Company Number: None

PATIENT
  Age: 69 Year
  Sex: Female
  Weight: 82.55 kg

DRUGS (7)
  1. VAGIFEM [Suspect]
     Active Substance: ESTRADIOL
     Indication: Lichen sclerosus
     Dosage: 10 ?G, UNK
     Route: 067
     Dates: start: 20140609, end: 20140612
  2. LIOTHYRONINE SODIUM [Concomitant]
     Active Substance: LIOTHYRONINE SODIUM
  3. CLOBETASOL [Concomitant]
     Active Substance: CLOBETASOL
  4. LERCANIDIPINE HYDROCHLORIDE [Concomitant]
     Active Substance: LERCANIDIPINE HYDROCHLORIDE
  5. MAGNESIUM [Concomitant]
     Active Substance: MAGNESIUM
  6. PREDNISOLONE [Concomitant]
     Active Substance: PREDNISOLONE
  7. BISOPROLOL FUMARATE [Concomitant]
     Active Substance: BISOPROLOL FUMARATE

REACTIONS (6)
  - Groin pain [Unknown]
  - Ear pain [Not Recovered/Not Resolved]
  - Myalgia [Unknown]
  - Hypothyroidism [Unknown]
  - Condition aggravated [Unknown]
  - Diarrhoea [Recovered/Resolved]

NARRATIVE: CASE EVENT DATE: 20140609
